FAERS Safety Report 6942405-0 (Version None)
Quarter: 2010Q3

REPORT INFORMATION
  Report Type: 
  Country: None (occurrence: None)
  Receive Date: 20100826
  Receipt Date: 20100813
  Transmission Date: 20110219
  Serious: Yes (Other)
  Sender: FDA-Public Use
  Company Number: PHHY2010US54135

PATIENT
  Age: 12 Year
  Sex: Male

DRUGS (1)
  1. LETROZOLE [Suspect]
     Dosage: 2.5 MG PER DAY

REACTIONS (4)
  - HAEMATOCRIT INCREASED [None]
  - HAEMOGLOBIN INCREASED [None]
  - HYPERBILIRUBINAEMIA [None]
  - POLYCYTHAEMIA [None]
